FAERS Safety Report 22390011 (Version 3)
Quarter: 2023Q2

REPORT INFORMATION
  Report Type: Spontaneous
  Country: US (occurrence: US)
  Receive Date: 20230531
  Receipt Date: 20230602
  Transmission Date: 20230721
  Serious: No
  Sender: FDA-Public Use
  Company Number: US-Dermavant-000639

PATIENT
  Age: 38 Year
  Sex: Female

DRUGS (7)
  1. TAPINAROF [Suspect]
     Active Substance: TAPINAROF
     Indication: Psoriasis
     Dosage: AREA OF APPLICATION: LEG
     Route: 061
     Dates: start: 20230424, end: 20230507
  2. SINGULAIR [Concomitant]
     Active Substance: MONTELUKAST SODIUM
     Indication: Seasonal allergy
     Dosage: 10 MG ONCE DAILY IN THE MORNING IN THE SPRING AS NEEDED
  3. Omega EPA supplement [Concomitant]
  4. Vitamin D K2 supplement [Concomitant]
  5. VITAMINS [Concomitant]
     Active Substance: VITAMINS
  6. TYLENOL [Concomitant]
     Active Substance: ACETAMINOPHEN
     Indication: Product used for unknown indication
  7. NP THYROID [Concomitant]
     Active Substance: LEVOTHYROXINE\LIOTHYRONINE
     Indication: Hypothyroidism

REACTIONS (19)
  - Influenza like illness [Recovering/Resolving]
  - Erythema [Recovering/Resolving]
  - Pyrexia [Recovered/Resolved]
  - Folliculitis [Recovering/Resolving]
  - Middle ear effusion [Recovering/Resolving]
  - Pharyngeal swelling [Recovering/Resolving]
  - Ear pain [Recovering/Resolving]
  - Pain [Recovered/Resolved]
  - Facial pain [Recovering/Resolving]
  - Sinus congestion [Recovering/Resolving]
  - Rhinorrhoea [Recovering/Resolving]
  - Cough [Recovering/Resolving]
  - Fatigue [Recovering/Resolving]
  - Dysphonia [Recovering/Resolving]
  - Oropharyngeal pain [Recovering/Resolving]
  - Influenza A virus test positive [Unknown]
  - Rash [Recovering/Resolving]
  - Feeling abnormal [Recovering/Resolving]
  - Inflammation [Recovering/Resolving]

NARRATIVE: CASE EVENT DATE: 20230427
